FAERS Safety Report 13916940 (Version 3)
Quarter: 2017Q3

REPORT INFORMATION
  Report Type: Report from Study
  Country: PK (occurrence: PK)
  Receive Date: 20170829
  Receipt Date: 20170915
  Transmission Date: 20171127
  Serious: Yes (Death, Other)
  Sender: FDA-Public Use
  Company Number: PK-INCYTE CORPORATION-2017IN007076

PATIENT

DRUGS (1)
  1. JAKAVI [Suspect]
     Active Substance: RUXOLITINIB
     Indication: POLYCYTHAEMIA VERA
     Dosage: 15 MG, BID
     Route: 048
     Dates: start: 20161128

REACTIONS (8)
  - Asthenia [Unknown]
  - Vision blurred [Unknown]
  - Dizziness [Unknown]
  - Loss of consciousness [Unknown]
  - Headache [Unknown]
  - Speech disorder [Unknown]
  - Cerebrovascular accident [Fatal]
  - Aphasia [Unknown]
